FAERS Safety Report 4606833-0 (Version None)
Quarter: 2005Q1

REPORT INFORMATION
  Report Type: 
  Country: None (occurrence: None)
  Receive Date: 20050310
  Receipt Date: 20041213
  Transmission Date: 20050727
  Serious: Yes (Other)
  Sender: FDA-Public Use
  Company Number: 2004239563US

PATIENT
  Age: 80 Year
  Sex: Female

DRUGS (2)
  1. CELEBREX [Suspect]
     Indication: ILL-DEFINED DISORDER
  2. VALDECOXIB [Suspect]
     Indication: RHEUMATOID ARTHRITIS
     Dosage: 10 MG (2 IN 1 D)

REACTIONS (8)
  - ABDOMINAL PAIN UPPER [None]
  - ASTHENIA [None]
  - BACK PAIN [None]
  - DIARRHOEA [None]
  - DIFFICULTY IN WALKING [None]
  - DRUG INEFFECTIVE [None]
  - HYPOKINESIA [None]
  - PAIN [None]
